FAERS Safety Report 17042901 (Version 3)
Quarter: 2019Q4

REPORT INFORMATION
  Report Type: Spontaneous
  Country: DE (occurrence: DE)
  Receive Date: 20191118
  Receipt Date: 20191224
  Transmission Date: 20200122
  Serious: Yes (Hospitalization)
  Sender: FDA-Public Use
  Company Number: DE-ABBVIE-19K-062-3000515-00

PATIENT
  Age: 30 Year
  Sex: Female
  Weight: 70 kg

DRUGS (5)
  1. MARCUMAR [Concomitant]
     Active Substance: PHENPROCOUMON
     Indication: PROTEIN S DEFICIENCY
  2. CLEXANE [Concomitant]
     Active Substance: ENOXAPARIN SODIUM
     Indication: ANTICOAGULANT THERAPY
     Dates: start: 20190906
  3. HUMIRA [Suspect]
     Active Substance: ADALIMUMAB
     Indication: CROHN^S DISEASE
     Route: 058
     Dates: start: 20181214, end: 20190802
  4. MARCUMAR [Concomitant]
     Active Substance: PHENPROCOUMON
     Indication: PROTEIN C DEFICIENCY
  5. MARCUMAR [Concomitant]
     Active Substance: PHENPROCOUMON
     Indication: ANTICOAGULANT THERAPY
     Route: 048
     Dates: end: 20190906

REACTIONS (8)
  - Colitis [Recovered/Resolved]
  - Haemoglobin decreased [Unknown]
  - Inflammatory marker increased [Recovering/Resolving]
  - Abdominal neoplasm [Recovered/Resolved]
  - C-reactive protein increased [Unknown]
  - Platelet count increased [Unknown]
  - Large intestinal stenosis [Recovered/Resolved]
  - Crohn^s disease [Unknown]

NARRATIVE: CASE EVENT DATE: 201812
